FAERS Safety Report 17562095 (Version 13)
Quarter: 2021Q1

REPORT INFORMATION
  Report Type: Spontaneous
  Country: IL (occurrence: IL)
  Receive Date: 20200319
  Receipt Date: 20210304
  Transmission Date: 20210419
  Serious: Yes (Other)
  Sender: FDA-Public Use
  Company Number: IL-PFIZER INC-2018497680

PATIENT
  Age: 64 Year
  Sex: Male
  Weight: 72 kg

DRUGS (19)
  1. ELELYSO [Suspect]
     Active Substance: TALIGLUCERASE ALFA
     Dosage: 1000/1200 UNITS ALTERNATELY TWICW A MONTH
     Route: 042
  2. ELELYSO [Suspect]
     Active Substance: TALIGLUCERASE ALFA
     Dosage: 1000/1200 UNITS ALTERNATELY TWICE A MONTH
     Route: 042
  3. ELELYSO [Suspect]
     Active Substance: TALIGLUCERASE ALFA
     Indication: GAUCHER^S DISEASE
     Dosage: 1000/1200 UNITS ALTERNATELY TWICE A MONTH
     Route: 042
  4. ELELYSO [Suspect]
     Active Substance: TALIGLUCERASE ALFA
     Dosage: 1000/1200 UNITS ALTERNATELY TWICE A MONTH
     Route: 042
  5. CRESTOR [Concomitant]
     Active Substance: ROSUVASTATIN CALCIUM
     Dosage: UNK
  6. ELELYSO [Suspect]
     Active Substance: TALIGLUCERASE ALFA
     Dosage: 1000/1200 UNITS ALTERNATELY TWICE A MONTH
     Route: 042
  7. ELELYSO [Suspect]
     Active Substance: TALIGLUCERASE ALFA
     Dosage: 1000/1200 UNITS ALTERNATELY TWICE A MONTH
     Route: 042
  8. ELELYSO [Suspect]
     Active Substance: TALIGLUCERASE ALFA
     Dosage: 1000/1200 UNITS ALTERNATELY TWICE A MONTH
     Route: 042
  9. VITAMIN D [Concomitant]
     Active Substance: VITAMIN D NOS
     Dosage: UNK
  10. VITAMIN B12 [Concomitant]
     Active Substance: CYANOCOBALAMIN
     Dosage: UNK UNK, MONTHLY
  11. CLAVIX [CLOPIDOGREL BISULFATE] [Concomitant]
     Active Substance: CLOPIDOGREL BISULFATE
     Indication: THROMBOSIS PROPHYLAXIS
     Dosage: UNK
  12. ELELYSO [Suspect]
     Active Substance: TALIGLUCERASE ALFA
     Dosage: 1000/1200 UNITS ALTERNATELY TWICE A MONTH
     Route: 042
  13. CALCIUM [Concomitant]
     Active Substance: CALCIUM
     Dosage: UNK
  14. CARDILOC [Concomitant]
     Active Substance: BISOPROLOL FUMARATE
     Indication: HYPERTENSION
     Dosage: UNK
     Dates: start: 201708
  15. ELELYSO [Suspect]
     Active Substance: TALIGLUCERASE ALFA
     Dosage: 1000/1200 UNITS ALTERNATELY ONCE A MONTH
     Route: 042
  16. ELELYSO [Suspect]
     Active Substance: TALIGLUCERASE ALFA
     Dosage: 1000/1200 UNITS ALTERNATELY ONCE A MONTH
     Route: 042
  17. ELELYSO [Suspect]
     Active Substance: TALIGLUCERASE ALFA
     Dosage: 1000/1200 UNITS ALTERNATELY TWICE A MONTH
     Route: 042
  18. ELELYSO [Suspect]
     Active Substance: TALIGLUCERASE ALFA
     Dosage: 1000/1200 UNITS ALTERNATELY TWICE A MONTH
     Route: 042
  19. TRITACE [Concomitant]
     Active Substance: RAMIPRIL
     Dosage: UNK

REACTIONS (8)
  - Platelet count decreased [Unknown]
  - Arthralgia [Unknown]
  - Muscle spasticity [Unknown]
  - Inappropriate schedule of product administration [Unknown]
  - Pain in extremity [Unknown]
  - Intervertebral disc protrusion [Recovering/Resolving]
  - Off label use [Unknown]
  - Urinary tract infection [Unknown]

NARRATIVE: CASE EVENT DATE: 20190722
